FAERS Safety Report 21792884 (Version 3)
Quarter: 2025Q4

REPORT INFORMATION
  Report Type: Spontaneous
  Country: EU (occurrence: EU)
  Receive Date: 20221229
  Receipt Date: 20251008
  Transmission Date: 20260117
  Serious: Yes (Other)
  Sender: BRISTOL-MYERS SQUIBB COMPANY
  Company Number: EU-AFSSAPS-CN20222104

PATIENT
  Age: 71 Year
  Sex: Female
  Weight: 87 kg

DRUGS (14)
  1. AZTREONAM [Suspect]
     Active Substance: AZTREONAM
     Indication: Pyelonephritis acute
     Dosage: 2 G, QD
     Dates: start: 20221111, end: 20221111
  2. AZTREONAM [Suspect]
     Active Substance: AZTREONAM
     Indication: Endocarditis
     Dosage: 2 G, BID
     Dates: start: 20221112, end: 20221114
  3. AZTREONAM [Suspect]
     Active Substance: AZTREONAM
     Indication: Bacterial pyelonephritis
     Dosage: 3 G, QD
     Dates: start: 20221114, end: 20221115
  4. DAPTOMYCIN [Suspect]
     Active Substance: DAPTOMYCIN
     Indication: Pyelonephritis acute
     Dosage: 700 MG 1 DAY/2
     Dates: start: 20221111, end: 20221114
  5. DAPTOMYCIN [Suspect]
     Active Substance: DAPTOMYCIN
     Indication: Bacterial pyelonephritis
     Dosage: 800 MG 1 DAY/2
     Dates: start: 20221114, end: 20221115
  6. AMIKACIN [Suspect]
     Active Substance: AMIKACIN
     Indication: Bacterial pyelonephritis
     Dates: start: 20221111, end: 20221111
  7. AMIKACIN [Suspect]
     Active Substance: AMIKACIN
     Indication: Pyelonephritis acute
  8. CAYSTON [Suspect]
     Active Substance: AZTREONAM
     Indication: Endocarditis
     Dosage: 2 G, QD
     Dates: start: 20221111, end: 20221111
  9. CAYSTON [Suspect]
     Active Substance: AZTREONAM
     Indication: Pyelonephritis acute
     Dosage: 2 G, QD, CONTINUOUS
     Dates: start: 20221112, end: 20221114
  10. CAYSTON [Suspect]
     Active Substance: AZTREONAM
     Indication: Bacterial pyelonephritis
     Dosage: 3 G, QD, CONTINUOUS
     Dates: start: 20221114, end: 20221115
  11. METRONIDAZOLE [Concomitant]
     Active Substance: METRONIDAZOLE
     Indication: Pyelonephritis acute
     Dosage: 250 MG, TID
     Dates: start: 20221114, end: 20221115
  12. METRONIDAZOLE [Concomitant]
     Active Substance: METRONIDAZOLE
     Indication: Bacterial pyelonephritis
     Dosage: 500 MG, TID
     Dates: start: 20221114, end: 20221114
  13. METRONIDAZOLE [Concomitant]
     Active Substance: METRONIDAZOLE
     Dosage: 250 MG, TID
     Dates: start: 20221111, end: 20221114
  14. METRONIDAZOLE [Concomitant]
     Active Substance: METRONIDAZOLE
     Dosage: 500 MG, QD
     Dates: start: 20221111, end: 20221111

REACTIONS (1)
  - Cholestatic liver injury [Recovering/Resolving]

NARRATIVE: CASE EVENT DATE: 20221112
